FAERS Safety Report 7729975-X (Version None)
Quarter: 2011Q3

REPORT INFORMATION
  Report Type: 
  Country: None (occurrence: None)
  Receive Date: 20110906
  Receipt Date: 20110829
  Transmission Date: 20111222
  Serious: Yes (Hospitalization)
  Sender: FDA-Public Use
  Company Number: US-BAYER-2011-035444

PATIENT
  Age: 21 Year
  Sex: Female
  Weight: 56.236 kg

DRUGS (12)
  1. YAZ [Suspect]
     Indication: ORAL CONTRACEPTION
     Dosage: UNK
     Dates: start: 20070305, end: 20090228
  2. YAZ [Suspect]
     Indication: PREMENSTRUAL SYNDROME
  3. SINGULAIR [Concomitant]
     Indication: MULTIPLE ALLERGIES
     Dosage: 10 MG, CONT
  4. BALZIVA [Concomitant]
     Indication: ORAL CONTRACEPTION
     Dosage: UNK
     Dates: start: 20090301
  5. CIPROFLOXACIN [Concomitant]
  6. ASTHMA MEDICATION NOS [Concomitant]
  7. VICODIN [Concomitant]
  8. YAZ [Suspect]
     Indication: ACNE
  9. MEFOXIN [Concomitant]
  10. NSAID'S [Concomitant]
  11. FEMCON FE [Concomitant]
  12. OMEPRAZOLE [Concomitant]
     Dosage: 20 MG, QD

REACTIONS (3)
  - CHOLECYSTITIS CHRONIC [None]
  - GALLBLADDER DISORDER [None]
  - INJURY [None]
